FAERS Safety Report 9403175 (Version 2)
Quarter: 2013Q4

REPORT INFORMATION
  Report Type: Spontaneous
  Country: US (occurrence: None)
  Receive Date: 20130712
  Receipt Date: 20131016
  Transmission Date: 20140711
  Serious: Yes (Other)
  Sender: FDA-Public Use
  Company Number: ACO_35640_2013

PATIENT
  Age: 59 Year
  Sex: Female

DRUGS (2)
  1. AMPYRA (DALFAMPRIDINE) TABLET, 10 MG [Suspect]
     Indication: GAIT DISTURBANCE
     Dates: start: 20120101
  2. AMPYRA (DALFAMPRIDINE) TABLET, 10 MG [Suspect]
     Indication: MULTIPLE SCLEROSIS
     Dates: start: 20120101

REACTIONS (11)
  - Head injury [None]
  - Restless legs syndrome [None]
  - Muscle strain [None]
  - Pain [None]
  - Osteoporosis [None]
  - Laceration [None]
  - Drug ineffective [None]
  - Laceration [None]
  - Spinal compression fracture [None]
  - Compression fracture [None]
  - Lumbar vertebral fracture [None]
